FAERS Safety Report 18095070 (Version 5)
Quarter: 2022Q4

REPORT INFORMATION
  Report Type: Report from Study
  Country: None (occurrence: US)
  Receive Date: 20200730
  Receipt Date: 20221102
  Transmission Date: 20230113
  Serious: Yes (Death, Hospitalization, Other)
  Sender: FDA-Public Use
  Company Number: US-AKCEA THERAPEUTICS-2020IS001211

PATIENT
  Age: 68 Year
  Sex: Male
  Weight: 120 kg

DRUGS (15)
  1. TEGSEDI [Suspect]
     Active Substance: INOTERSEN SODIUM
     Indication: Amyloidosis
     Route: 058
  2. TEGSEDI [Suspect]
     Active Substance: INOTERSEN SODIUM
     Indication: Polyneuropathy
  3. TEGSEDI [Suspect]
     Active Substance: INOTERSEN SODIUM
     Indication: Cardiac failure congestive
  4. TEGSEDI [Suspect]
     Active Substance: INOTERSEN SODIUM
     Indication: Hereditary neuropathic amyloidosis
  5. DEVICE [Suspect]
     Active Substance: DEVICE
  6. TEGSEDI [Suspect]
     Active Substance: INOTERSEN SODIUM
     Route: 058
  7. TEGSEDI [Suspect]
     Active Substance: INOTERSEN SODIUM
     Route: 058
  8. ASPIRIN [Concomitant]
     Active Substance: ASPIRIN
     Route: 048
  9. CARVEDILOL [Concomitant]
     Active Substance: CARVEDILOL
     Route: 048
  10. ENTRESTO [Concomitant]
     Active Substance: SACUBITRIL\VALSARTAN
     Route: 048
  11. ATORVASTATIN [Concomitant]
     Active Substance: ATORVASTATIN
     Route: 048
  12. ZYRTEC [Concomitant]
     Active Substance: CETIRIZINE HYDROCHLORIDE
     Route: 048
  13. KCL [Concomitant]
     Active Substance: POTASSIUM CHLORIDE
     Route: 048
  14. TORSEMIDE [Concomitant]
     Active Substance: TORSEMIDE
     Route: 048
  15. TEGSEDI [Suspect]
     Active Substance: INOTERSEN SODIUM
     Route: 058

REACTIONS (8)
  - Gastrointestinal haemorrhage [Unknown]
  - Cellulitis [Unknown]
  - Hypotension [Unknown]
  - Flatulence [Unknown]
  - Abdominal distension [Unknown]
  - Decreased appetite [Unknown]
  - Generalised oedema [Unknown]
  - Death [Fatal]

NARRATIVE: CASE EVENT DATE: 20221007
